FAERS Safety Report 11658144 (Version 2)
Quarter: 2015Q4

REPORT INFORMATION
  Report Type: Spontaneous
  Country: KR (occurrence: KR)
  Receive Date: 20151024
  Receipt Date: 20151028
  Transmission Date: 20160304
  Serious: Yes (Hospitalization)
  Sender: FDA-Public Use
  Company Number: KR-AMGEN-KORCT2015112092

PATIENT
  Age: 60 Year
  Sex: Female

DRUGS (20)
  1. DOXORUBICIN [Concomitant]
     Active Substance: DOXORUBICIN
     Dosage: 81 MG, UNK
     Route: 042
     Dates: start: 20150929, end: 20150929
  2. CYCLOPHOSPHAMIDE. [Concomitant]
     Active Substance: CYCLOPHOSPHAMIDE
     Dosage: 810 MG, UNK
     Route: 042
     Dates: start: 20150929, end: 20150929
  3. G-LASTA [Suspect]
     Active Substance: PEGFILGRASTIM
     Indication: FEBRILE NEUTROPENIA
     Dosage: 6 MG, 1X/3WEEKS
     Route: 058
     Dates: start: 20150729, end: 20150729
  4. DOCETAXEL. [Concomitant]
     Active Substance: DOCETAXEL
     Dosage: 121.5 MG, UNK
     Route: 042
     Dates: start: 20150929, end: 20150929
  5. CYCLOPHOSPHAMIDE. [Concomitant]
     Active Substance: CYCLOPHOSPHAMIDE
     Dosage: 810 MG, UNK
     Route: 042
     Dates: start: 20150728, end: 20150728
  6. G-LASTA [Suspect]
     Active Substance: PEGFILGRASTIM
     Dosage: 6 MG, 1X/3WEEKS
     Route: 058
     Dates: start: 20150909, end: 20150909
  7. DOCETAXEL. [Concomitant]
     Active Substance: DOCETAXEL
     Dosage: 117 MG, UNK
     Route: 042
     Dates: start: 20150818, end: 20150818
  8. DOXORUBICIN [Concomitant]
     Active Substance: DOXORUBICIN
     Dosage: 78 MG, UNK
     Route: 042
     Dates: start: 20150818, end: 20150818
  9. CYCLOPHOSPHAMIDE. [Concomitant]
     Active Substance: CYCLOPHOSPHAMIDE
     Dosage: 780 MG, UNK
     Route: 042
     Dates: start: 20150818, end: 20150818
  10. CYCLOPHOSPHAMIDE. [Concomitant]
     Active Substance: CYCLOPHOSPHAMIDE
     Dosage: 810 MG, UNK
     Route: 042
     Dates: start: 20150908, end: 20150908
  11. DOCETAXEL. [Concomitant]
     Active Substance: DOCETAXEL
     Dosage: 121.5 MG, UNK
     Route: 042
     Dates: start: 20150908, end: 20150908
  12. GABAPENTIN. [Concomitant]
     Active Substance: GABAPENTIN
     Dosage: 100 MG, UNK
     Route: 048
     Dates: start: 20150728
  13. SANCUSO [Concomitant]
     Active Substance: GRANISETRON
     Dosage: 34.3 MG, UNK
     Route: 061
     Dates: start: 20150727
  14. G-LASTA [Suspect]
     Active Substance: PEGFILGRASTIM
     Dosage: 6 MG, 1X/3WEEKS
     Route: 058
     Dates: start: 20150819, end: 20150819
  15. DOXORUBICIN [Concomitant]
     Active Substance: DOXORUBICIN
     Dosage: 81 MG, UNK
     Route: 042
     Dates: start: 20150908, end: 20150908
  16. G-LASTA [Suspect]
     Active Substance: PEGFILGRASTIM
     Dosage: 6 MG, 1X/3WEEKS
     Route: 058
     Dates: start: 20150930, end: 20150930
  17. DOCETAXEL. [Concomitant]
     Active Substance: DOCETAXEL
     Dosage: 121.5 MG, UNK
     Route: 042
     Dates: start: 20150728, end: 20150728
  18. RABIET [Concomitant]
     Dosage: 10 MG, UNK
     Route: 048
     Dates: start: 20150804
  19. DOXORUBICIN [Concomitant]
     Active Substance: DOXORUBICIN
     Dosage: 81 MG, UNK
     Route: 042
     Dates: start: 20150728, end: 20150728
  20. BESZYME [Concomitant]
     Dosage: 1 TAB, UNK
     Route: 048
     Dates: start: 20150804

REACTIONS (1)
  - Neutropenia [Recovered/Resolved]

NARRATIVE: CASE EVENT DATE: 20151005
